FAERS Safety Report 6245839-5 (Version None)
Quarter: 2009Q2

REPORT INFORMATION
  Report Type: 
  Country: None (occurrence: None)
  Receive Date: 20090626
  Receipt Date: 20090616
  Transmission Date: 20091009
  Serious: Yes (Hospitalization, Other)
  Sender: FDA-Public Use
  Company Number: US-ABBOTT-09P-163-0580244-00

PATIENT
  Sex: Female
  Weight: 49.94 kg

DRUGS (10)
  1. HUMIRA [Suspect]
     Indication: RHEUMATOID ARTHRITIS
     Route: 058
  2. HUMIRA [Suspect]
     Dosage: PRE-FILLED SYRINGE
     Route: 058
     Dates: start: 20030603
  3. PREDNISONE [Suspect]
     Indication: DRUG USE FOR UNKNOWN INDICATION
  4. CELEBREX [Suspect]
     Indication: DRUG USE FOR UNKNOWN INDICATION
  5. METHOTREXATE [Concomitant]
     Indication: DRUG USE FOR UNKNOWN INDICATION
  6. NORTRIPTYLINE HCL [Concomitant]
     Indication: DRUG USE FOR UNKNOWN INDICATION
  7. CELEXA [Concomitant]
     Indication: DRUG USE FOR UNKNOWN INDICATION
  8. WELLBUTRIN [Concomitant]
     Indication: DRUG USE FOR UNKNOWN INDICATION
  9. ADDERALL 10 [Concomitant]
     Indication: DRUG USE FOR UNKNOWN INDICATION
  10. CLONAZEPAM [Concomitant]
     Indication: DRUG USE FOR UNKNOWN INDICATION

REACTIONS (10)
  - BLOOD PRESSURE DECREASED [None]
  - COUGH [None]
  - PATHOLOGICAL FRACTURE [None]
  - PYREXIA [None]
  - RECTAL HAEMORRHAGE [None]
  - RESPIRATORY TRACT CONGESTION [None]
  - SEPSIS [None]
  - SINUS CONGESTION [None]
  - UPPER RESPIRATORY TRACT INFECTION [None]
  - URINARY TRACT INFECTION [None]
